FAERS Safety Report 4282311-6 (Version None)
Quarter: 2004Q1

REPORT INFORMATION
  Report Type: 
  Country: None (occurrence: None)
  Receive Date: 20040112
  Receipt Date: 20031119
  Transmission Date: 20041129
  Serious: No
  Sender: FDA-Public Use
  Company Number: 345907

PATIENT
  Age: 50 Year
  Sex: Male
  Weight: 64.4 kg

DRUGS (6)
  1. FUZEON [Suspect]
     Indication: HIV INFECTION
     Dosage: 90 MG DAILY, SUBCUTANEOUS
     Route: 058
     Dates: start: 20030815, end: 20030815
  2. KALETRA [Concomitant]
  3. INVIRASE [Concomitant]
  4. VIDEX [Concomitant]
  5. VIRED (TENOFOVIR) [Concomitant]
  6. EPIVIR [Concomitant]

REACTIONS (3)
  - ERYTHEMA MULTIFORME [None]
  - HYPERSENSITIVITY [None]
  - HYPOTENSION [None]
